FAERS Safety Report 7156919-4 (Version None)
Quarter: 2010Q4

REPORT INFORMATION
  Report Type: 
  Country: None (occurrence: None)
  Receive Date: 20101129
  Receipt Date: 20101117
  Transmission Date: 20110411
  Serious: Yes (Hospitalization)
  Sender: FDA-Public Use
  Company Number: A0892947A

PATIENT
  Age: 73 Year
  Sex: Female

DRUGS (4)
  1. SODIUM FLUORIDE + ISOPENTANE + K NITRATE + NA TRIPOLYPHOSPHA (SODIUM F [Suspect]
     Indication: SENSITIVITY OF TEETH
     Dosage: DENTAL
     Route: 004
     Dates: start: 20101115, end: 20101116
  2. LEVOTHYROXINE SODIUM [Concomitant]
  3. SINEMET [Concomitant]
  4. TOPIRAMATE [Concomitant]

REACTIONS (3)
  - DIARRHOEA [None]
  - HYPERSENSITIVITY [None]
  - PAIN [None]
